FAERS Safety Report 6165134-2 (Version None)
Quarter: 2009Q2

REPORT INFORMATION
  Report Type: 
  Country: None (occurrence: None)
  Receive Date: 20090423
  Receipt Date: 20090415
  Transmission Date: 20091009
  Serious: Yes (Hospitalization, Congenital Anomaly)
  Sender: FDA-Public Use
  Company Number: FR-WYE-G02876409

PATIENT
  Sex: Male

DRUGS (3)
  1. EFFEXOR [Suspect]
     Indication: DEPRESSION
     Route: 064
     Dates: end: 20080525
  2. EFFEXOR [Suspect]
     Route: 064
     Dates: start: 20080625
  3. PRAZEPAM [Suspect]
     Indication: DEPRESSION
     Dosage: UNKNOWN
     Route: 064
     Dates: end: 20080525

REACTIONS (2)
  - PULMONARY VALVE STENOSIS CONGENITAL [None]
  - RIGHT VENTRICULAR HYPERTROPHY [None]
